FAERS Safety Report 25509797 (Version 1)
Quarter: 2025Q3

REPORT INFORMATION
  Report Type: Spontaneous
  Country: US (occurrence: None)
  Receive Date: 20250702
  Receipt Date: 20250702
  Transmission Date: 20251021
  Serious: Yes (Other)
  Sender: FDA-CTU
  Company Number: None

PATIENT
  Age: 32 Year
  Sex: Male
  Weight: 60.75 kg

DRUGS (1)
  1. MYCOPHENOLATE MOFETIL [Suspect]
     Active Substance: MYCOPHENOLATE MOFETIL
     Indication: Prophylaxis against transplant rejection
     Dosage: FREQUENCY : EVERY 12 HOURS;?
     Route: 048
     Dates: start: 20250601

REACTIONS (10)
  - Tunnel vision [None]
  - Blood magnesium decreased [None]
  - Dizziness [None]
  - Dizziness [None]
  - Heart rate increased [None]
  - Hypertension [None]
  - Loss of consciousness [None]
  - Tachycardia [None]
  - Heart rate increased [None]
  - Tremor [None]

NARRATIVE: CASE EVENT DATE: 20250628
